FAERS Safety Report 6520349-6 (Version None)
Quarter: 2009Q4

REPORT INFORMATION
  Report Type: 
  Country: None (occurrence: None)
  Receive Date: 20091229
  Receipt Date: 20091214
  Transmission Date: 20100525
  Serious: Yes (Hospitalization)
  Sender: FDA-Public Use
  Company Number: FR-PFIZER INC-2009309480

PATIENT
  Sex: Female

DRUGS (18)
  1. IRINOTECAN HCL [Suspect]
     Indication: METASTATIC GASTRIC CANCER
  2. FLUOROURACIL [Suspect]
     Indication: METASTATIC GASTRIC CANCER
  3. FOLINIC ACID [Suspect]
     Indication: METASTATIC GASTRIC CANCER
  4. TRIMEBUTINE [Concomitant]
  5. LEXOMIL [Concomitant]
  6. NEXIUM [Concomitant]
  7. LEVOTHYROXINE SODIUM [Concomitant]
  8. SPASFON [Concomitant]
  9. BROMAZEPAM [Concomitant]
  10. IMODIUM [Concomitant]
  11. ZOPHREN [Concomitant]
  12. PRIMPERAN TAB [Concomitant]
  13. DURAGESIC-100 [Concomitant]
  14. FORLAX [Concomitant]
  15. ACTISKENAN [Concomitant]
  16. MOPRAL [Concomitant]
  17. DEROXAT [Concomitant]
  18. TPN [Concomitant]

REACTIONS (1)
  - GENERAL PHYSICAL HEALTH DETERIORATION [None]
